FAERS Safety Report 17943604 (Version 2)
Quarter: 2020Q3

REPORT INFORMATION
  Report Type: Report from Study
  Country: US (occurrence: US)
  Receive Date: 20200625
  Receipt Date: 20200714
  Transmission Date: 20201103
  Serious: Yes (Hospitalization, Other)
  Sender: FDA-Public Use
  Company Number: US-GILEAD-2020-0475200

PATIENT
  Age: 38 Year
  Sex: Female
  Weight: 131.52 kg

DRUGS (15)
  1. TIZANIDINE. [Concomitant]
     Active Substance: TIZANIDINE
  2. TADALAFIL. [Suspect]
     Active Substance: TADALAFIL
     Indication: PULMONARY ARTERIAL HYPERTENSION
     Route: 065
     Dates: start: 20200622
  3. BUSPIRONE [Concomitant]
     Active Substance: BUSPIRONE HYDROCHLORIDE
  4. ADCIRCA [Concomitant]
     Active Substance: TADALAFIL
  5. NAPROXEN. [Concomitant]
     Active Substance: NAPROXEN
  6. BUSPAR [Concomitant]
     Active Substance: BUSPIRONE HYDROCHLORIDE
  7. AMBRISENTAN [Suspect]
     Active Substance: AMBRISENTAN
     Indication: PULMONARY ARTERIAL HYPERTENSION
     Dosage: 5 MG, QD
     Route: 065
     Dates: start: 20200612
  8. FUROSEMIDE. [Concomitant]
     Active Substance: FUROSEMIDE
  9. CLONIDINE. [Concomitant]
     Active Substance: CLONIDINE
  10. DULOXETINE. [Concomitant]
     Active Substance: DULOXETINE
  11. OXYCODONE WITH APAP [Concomitant]
     Active Substance: ACETAMINOPHEN\OXYCODONE HYDROCHLORIDE
  12. QUETIAPINE. [Concomitant]
     Active Substance: QUETIAPINE
  13. DILTIAZEM. [Concomitant]
     Active Substance: DILTIAZEM
  14. CARVEDILOL. [Concomitant]
     Active Substance: CARVEDILOL
  15. CYMBALTA [Concomitant]
     Active Substance: DULOXETINE HYDROCHLORIDE

REACTIONS (2)
  - Pulmonary arterial hypertension [Unknown]
  - Oedema [Recovered/Resolved]
